FAERS Safety Report 6473594-2 (Version None)
Quarter: 2009Q4

REPORT INFORMATION
  Report Type: 
  Country: None (occurrence: None)
  Receive Date: 20091204
  Receipt Date: 20090511
  Transmission Date: 20100525
  Serious: Yes (Other)
  Sender: FDA-Public Use
  Company Number: FR-ELI_LILLY_AND_COMPANY-FR200901001232

PATIENT
  Age: 62 Year
  Sex: Male
  Weight: 115 kg

DRUGS (6)
  1. BYETTA [Suspect]
     Indication: TYPE 2 DIABETES MELLITUS
     Dosage: 5 UG, 2/D
     Route: 058
     Dates: start: 20081101
  2. BYETTA [Suspect]
     Dosage: 10 UG, 2/D
     Route: 058
     Dates: end: 20081201
  3. NOVONORM [Concomitant]
     Indication: TYPE 2 DIABETES MELLITUS
     Dosage: 12 MG, DAILY (1/D)
     Route: 048
     Dates: start: 20000101
  4. METFORMIN HCL [Concomitant]
     Indication: TYPE 2 DIABETES MELLITUS
     Dosage: 1000 MG, 3/D
     Route: 048
     Dates: start: 20000101
  5. ZANIDIP [Concomitant]
  6. DIAMICRON [Concomitant]
     Indication: TYPE 2 DIABETES MELLITUS

REACTIONS (2)
  - INFLUENZA LIKE ILLNESS [None]
  - LIVER INJURY [None]
